FAERS Safety Report 24759583 (Version 1)
Quarter: 2024Q4

REPORT INFORMATION
  Report Type: Report from Study
  Country: US (occurrence: US)
  Receive Date: 20241220
  Receipt Date: 20241220
  Transmission Date: 20250114
  Serious: Yes (Hospitalization)
  Sender: ABBVIE
  Company Number: US-ABBVIE-6050159

PATIENT
  Age: 73 Year
  Sex: Female

DRUGS (1)
  1. HUMIRA [Suspect]
     Active Substance: ADALIMUMAB
     Indication: Product used for unknown indication
     Route: 058
     Dates: start: 20241016

REACTIONS (4)
  - Wound cellulitis [Unknown]
  - Scratch [Unknown]
  - Acne pustular [Unknown]
  - Purulent discharge [Unknown]

NARRATIVE: CASE EVENT DATE: 20240101
